FAERS Safety Report 19760368 (Version 1)
Quarter: 2021Q3

REPORT INFORMATION
  Report Type: Spontaneous
  Country: US (occurrence: US)
  Receive Date: 20210830
  Receipt Date: 20210830
  Transmission Date: 20211014
  Serious: No
  Sender: FDA-Public Use
  Company Number: US-TEVA-2021-US-1941443

PATIENT
  Age: 49 Year
  Sex: Female

DRUGS (4)
  1. IMATINIB. [Suspect]
     Active Substance: IMATINIB MESYLATE
     Indication: CHRONIC MYELOID LEUKAEMIA
     Route: 065
     Dates: start: 20200429
  2. IMATINIB. [Suspect]
     Active Substance: IMATINIB MESYLATE
     Route: 065
     Dates: start: 20200527
  3. IMATINIB. [Suspect]
     Active Substance: IMATINIB MESYLATE
     Dosage: 200 MILLIGRAM DAILY;
     Route: 065
     Dates: start: 20210105
  4. IMATINIB. [Suspect]
     Active Substance: IMATINIB MESYLATE
     Route: 065
     Dates: start: 20200615

REACTIONS (13)
  - Constipation [Recovering/Resolving]
  - Dizziness [Recovering/Resolving]
  - Tinnitus [Recovering/Resolving]
  - Dyspnoea [Recovering/Resolving]
  - Swelling face [Recovering/Resolving]
  - Toothache [Recovering/Resolving]
  - Fatigue [Recovering/Resolving]
  - Vision blurred [Recovering/Resolving]
  - Screaming [Unknown]
  - Product formulation issue [Unknown]
  - Middle insomnia [Unknown]
  - Diarrhoea [Recovering/Resolving]
  - Muscle spasms [Recovering/Resolving]

NARRATIVE: CASE EVENT DATE: 2020
